FAERS Safety Report 14491747 (Version 2)
Quarter: 2018Q2

REPORT INFORMATION
  Report Type: Spontaneous
  Country: US (occurrence: US)
  Receive Date: 20180206
  Receipt Date: 20180422
  Transmission Date: 20180711
  Serious: Yes (Other)
  Sender: FDA-Public Use
  Company Number: US-APOTEX-2018AP006076

PATIENT
  Age: 6 Year
  Sex: Male

DRUGS (1)
  1. RISPERIDONE. [Suspect]
     Active Substance: RISPERIDONE
     Indication: INTENTIONAL SELF-INJURY
     Dosage: UNK
     Route: 065

REACTIONS (2)
  - Intentional self-injury [Recovering/Resolving]
  - Condition aggravated [Recovering/Resolving]
